FAERS Safety Report 20093928 (Version 2)
Quarter: 2021Q4

REPORT INFORMATION
  Report Type: Spontaneous
  Country: US (occurrence: US)
  Receive Date: 20211121
  Receipt Date: 20211216
  Transmission Date: 20220304
  Serious: Yes (Death, Other)
  Sender: FDA-Public Use
  Company Number: US-BEH-2021138194

PATIENT
  Sex: Female

DRUGS (1)
  1. HIZENTRA [Suspect]
     Active Substance: HUMAN IMMUNOGLOBULIN G
     Indication: Immunodeficiency
     Dosage: 10 GRAM, QW
     Route: 058
     Dates: start: 201912

REACTIONS (2)
  - Hospice care [Unknown]
  - Death [Fatal]
